FAERS Safety Report 16473067 (Version 3)
Quarter: 2019Q3

REPORT INFORMATION
  Report Type: Spontaneous
  Country: ID (occurrence: ID)
  Receive Date: 20190625
  Receipt Date: 20190818
  Transmission Date: 20191004
  Serious: Yes (Death)
  Sender: FDA-Public Use
  Company Number: ID-ROCHE-2343197

PATIENT
  Age: 64 Year
  Sex: Female

DRUGS (1)
  1. TECENTRIQ [Suspect]
     Active Substance: ATEZOLIZUMAB
     Indication: LUNG NEOPLASM MALIGNANT
     Dosage: LAST DOSE: 21/MAY/2019
     Route: 065
     Dates: start: 20190521

REACTIONS (1)
  - Pneumonia [Fatal]
